FAERS Safety Report 10355069 (Version 1)
Quarter: 2014Q3

REPORT INFORMATION
  Report Type: Report from Study
  Country: US (occurrence: US)
  Receive Date: 20140731
  Receipt Date: 20140731
  Transmission Date: 20150326
  Serious: Yes (Other)
  Sender: FDA-Public Use
  Company Number: US-BRISTOL-MYERS SQUIBB COMPANY-21226873

PATIENT
  Age: 32 Year
  Sex: Male

DRUGS (1)
  1. YERVOY [Suspect]
     Active Substance: IPILIMUMAB
     Dates: start: 201407

REACTIONS (6)
  - Chills [Unknown]
  - Pulmonary oedema [Unknown]
  - Swelling face [Unknown]
  - Fatigue [Unknown]
  - Rash [Unknown]
  - Oxygen saturation decreased [Unknown]

NARRATIVE: CASE EVENT DATE: 201407
